FAERS Safety Report 20176500 (Version 1)
Quarter: 2021Q4

REPORT INFORMATION
  Report Type: Spontaneous
  Country: US (occurrence: None)
  Receive Date: 20211210
  Receipt Date: 20211210
  Transmission Date: 20220303
  Serious: Yes (Other)
  Sender: FDA-Public Use
  Company Number: None

PATIENT
  Age: 71 Year
  Sex: Male
  Weight: 90.9 kg

DRUGS (1)
  1. OFEV [Suspect]
     Active Substance: NINTEDANIB
     Indication: Interstitial lung disease
     Dosage: FREQUENCY : TWICE A DAY;?
     Route: 048
     Dates: start: 20211101, end: 20211204

REACTIONS (7)
  - Haematochezia [None]
  - Constipation [None]
  - Abdominal tenderness [None]
  - Abdominal pain [None]
  - Vomiting [None]
  - Flatulence [None]
  - Therapy interrupted [None]

NARRATIVE: CASE EVENT DATE: 20211129
